FAERS Safety Report 10047522 (Version 1)
Quarter: 2014Q1

REPORT INFORMATION
  Report Type: Spontaneous
  Country: CO (occurrence: CO)
  Receive Date: 20140331
  Receipt Date: 20140331
  Transmission Date: 20141002
  Serious: Yes (Other)
  Sender: FDA-Public Use
  Company Number: CO-JNJFOC-20140313753

PATIENT
  Age: 18 Year
  Sex: Male

DRUGS (5)
  1. RISPERDAL [Suspect]
     Indication: ABNORMAL BEHAVIOUR
     Route: 048
     Dates: start: 2006, end: 20140313
  2. RISPERDAL [Suspect]
     Indication: EPILEPSY
     Route: 048
     Dates: start: 2006, end: 20140313
  3. RISPERDAL [Suspect]
     Indication: MENTAL RETARDATION
     Route: 048
     Dates: start: 2006, end: 20140313
  4. LAMOTRIGINE [Concomitant]
     Indication: PRODUCT USED FOR UNKNOWN INDICATION
     Route: 048
     Dates: start: 2009
  5. LACOSAMIDE [Concomitant]
     Indication: PRODUCT USED FOR UNKNOWN INDICATION
     Route: 048
     Dates: start: 2011

REACTIONS (2)
  - Self injurious behaviour [Unknown]
  - Treatment noncompliance [Not Recovered/Not Resolved]
